FAERS Safety Report 18097482 (Version 1)
Quarter: 2020Q3

REPORT INFORMATION
  Report Type: Spontaneous
  Country: US (occurrence: US)
  Receive Date: 20200731
  Receipt Date: 20200731
  Transmission Date: 20201103
  Serious: Yes (Hospitalization)
  Sender: FDA-Public Use
  Company Number: None

PATIENT
  Age: 51 Year
  Sex: Male
  Weight: 58.5 kg

DRUGS (1)
  1. ASSURED INSTANT HAND SANITIZER CLEAR [Suspect]
     Active Substance: ALCOHOL
     Dates: start: 20200601, end: 20200729

REACTIONS (9)
  - Nausea [None]
  - Abdominal pain upper [None]
  - Sleep disorder [None]
  - Recalled product administered [None]
  - Headache [None]
  - Feeding disorder [None]
  - Dyspnoea [None]
  - Dizziness [None]
  - Product contamination chemical [None]

NARRATIVE: CASE EVENT DATE: 20200717
